FAERS Safety Report 22166862 (Version 1)
Quarter: 2023Q2

REPORT INFORMATION
  Report Type: Spontaneous
  Country: JP (occurrence: JP)
  Receive Date: 20230403
  Receipt Date: 20230403
  Transmission Date: 20230722
  Serious: Yes (Other)
  Sender: FDA-Public Use
  Company Number: JP-BAYER-2023A043409

PATIENT
  Age: 30 Year
  Sex: Female

DRUGS (3)
  1. ADEMPAS [Suspect]
     Active Substance: RIOCIGUAT
     Indication: Embolism
     Dosage: 4.5MG
  2. ADEMPAS [Suspect]
     Active Substance: RIOCIGUAT
     Indication: Embolism
     Dosage: 6.0MG
  3. ADEMPAS [Suspect]
     Active Substance: RIOCIGUAT
     Indication: Embolism
     Dosage: 4.5MG

REACTIONS (2)
  - Blood pressure decreased [Recovered/Resolved]
  - Off label use [None]
